FAERS Safety Report 9677238 (Version 1)
Quarter: 2013Q4

REPORT INFORMATION
  Report Type: Spontaneous
  Country: US (occurrence: None)
  Receive Date: 20131107
  Receipt Date: 20131107
  Transmission Date: 20140711
  Serious: Yes (Disabling)
  Sender: FDA-Public Use
  Company Number: None

PATIENT
  Age: 68 Year
  Sex: Male

DRUGS (2)
  1. ALBUTEROL [Suspect]
     Indication: CHRONIC OBSTRUCTIVE PULMONARY DISEASE
     Dosage: 1 VIAL FOUR TIMES DAILY INHALATION
     Route: 055
     Dates: start: 20110401, end: 20131106
  2. ALBUTEROL [Suspect]
     Indication: EMPHYSEMA
     Dosage: 1 VIAL FOUR TIMES DAILY INHALATION
     Route: 055
     Dates: start: 20110401, end: 20131106

REACTIONS (2)
  - Drug ineffective [None]
  - Total lung capacity decreased [None]
